FAERS Safety Report 4669582-9 (Version None)
Quarter: 2005Q2

REPORT INFORMATION
  Report Type: 
  Country: None (occurrence: None)
  Receive Date: 20050520
  Receipt Date: 20050505
  Transmission Date: 20051028
  Serious: Yes (Other)
  Sender: FDA-Public Use
  Company Number: 2005S1003242

PATIENT
  Age: 66 Year
  Sex: Female
  Weight: 70.3075 kg

DRUGS (6)
  1. REMIFEMIN TABLET [Suspect]
     Indication: HORMONE REPLACEMENT THERAPY
     Dosage: QD;
  2. ESTRADIOL [Suspect]
     Indication: MENOPAUSE
     Dosage: QD; PO
     Route: 048
     Dates: start: 20010101, end: 20040801
  3. LANSOPRAZOLE [Concomitant]
  4. LEVOTHYROXINE SODIUM [Concomitant]
  5. ATENOLOL [Concomitant]
  6. NORETHINDRONE [Suspect]
     Indication: HORMONE REPLACEMENT THERAPY
     Dosage: 5 MG; QD
     Dates: start: 20010101, end: 20040801

REACTIONS (5)
  - DRUG INEFFECTIVE [None]
  - ENDOMETRIAL HYPERTROPHY [None]
  - HOT FLUSH [None]
  - POSTMENOPAUSAL HAEMORRHAGE [None]
  - UTERINE POLYP [None]
